FAERS Safety Report 4928234-8 (Version None)
Quarter: 2006Q1

REPORT INFORMATION
  Report Type: 
  Country: None (occurrence: None)
  Receive Date: 20060223
  Receipt Date: 20060201
  Transmission Date: 20060701
  Serious: Yes (Hospitalization)
  Sender: FDA-Public Use
  Company Number: FR200602000364

PATIENT
  Age: 78 Year
  Sex: Female

DRUGS (10)
  1. FORTEO [Suspect]
     Indication: OSTEOPOROSIS
     Dosage: 20 UG DAILY (1/D) SUBCUTANEOUS
     Route: 058
     Dates: start: 20050103
  2. FORTEO [Concomitant]
  3. DISCOTRINE (GLYCERYL TRINITRATE) [Concomitant]
  4. COZAAR [Concomitant]
  5. ADANCOR (NICORANDIL) [Concomitant]
  6. PRAVASTATIN [Concomitant]
  7. ALLOPURINOL [Concomitant]
  8. AMIODARONE [Concomitant]
  9. ASPEGIC 1000 [Concomitant]
  10. OMEPRAZOLE [Concomitant]

REACTIONS (2)
  - EYE IRRITATION [None]
  - RECTAL HAEMORRHAGE [None]
